FAERS Safety Report 12755732 (Version 10)
Quarter: 2017Q2

REPORT INFORMATION
  Report Type: Spontaneous
  Country: US (occurrence: US)
  Receive Date: 20160916
  Receipt Date: 20170524
  Transmission Date: 20170830
  Serious: Yes (Hospitalization, Other)
  Sender: FDA-Public Use
  Company Number: US-PFIZER INC-2016430593

PATIENT
  Age: 41 Year
  Sex: Male
  Weight: 72.57 kg

DRUGS (1)
  1. CHANTIX [Suspect]
     Active Substance: VARENICLINE TARTRATE
     Indication: SMOKING CESSATION THERAPY
     Dosage: UNK
     Dates: start: 2014

REACTIONS (8)
  - Aggression [Unknown]
  - Depression [Unknown]
  - Psychotic disorder [Unknown]
  - Toxicity to various agents [Unknown]
  - Anger [Unknown]
  - Amnesia [Unknown]
  - Confusional state [Unknown]
  - Physical assault [Unknown]

NARRATIVE: CASE EVENT DATE: 2014
